FAERS Safety Report 7111986-9 (Version None)
Quarter: 2010Q4

REPORT INFORMATION
  Report Type: 
  Country: None (occurrence: None)
  Receive Date: 20101119
  Receipt Date: 20101108
  Transmission Date: 20110411
  Serious: Yes (Other)
  Sender: FDA-Public Use
  Company Number: CA-JNJFOC-20100402443

PATIENT
  Age: 64 Year
  Sex: Female
  Weight: 80 kg

DRUGS (12)
  1. REMICADE [Suspect]
     Indication: PSORIASIS
     Dosage: INITIALLY RECEIVED IT AT WEEKS 0, 2 AND 6, TOTAL OF 4 DOSES
     Route: 042
  2. EFFEXOR [Concomitant]
     Indication: DEPRESSION
     Route: 048
  3. LIPITOR [Concomitant]
     Indication: DYSLIPIDAEMIA
     Route: 048
  4. NORVASC [Concomitant]
     Indication: HYPERTENSION
     Route: 048
  5. DIOVAN [Concomitant]
     Indication: HYPERTENSION
     Route: 048
  6. ATIVAN [Concomitant]
     Indication: ANXIETY
     Route: 048
  7. FOSAMAX [Concomitant]
     Indication: OSTEOPOROSIS
     Route: 048
  8. CALCIUM [Concomitant]
     Indication: OSTEOPOROSIS
  9. METHOTREXATE [Concomitant]
     Indication: PSORIASIS
     Route: 050
  10. FOLIC ACID [Concomitant]
  11. LYRICA [Concomitant]
  12. BIOCAL D FORTE [Concomitant]

REACTIONS (2)
  - LUPUS-LIKE SYNDROME [None]
  - TOOTH INFECTION [None]
